FAERS Safety Report 6538617-0 (Version None)
Quarter: 2010Q1

REPORT INFORMATION
  Report Type: 
  Country: None (occurrence: None)
  Receive Date: 20100114
  Receipt Date: 20100114
  Transmission Date: 20100710
  Serious: No
  Sender: FDA-Public Use
  Company Number: None

PATIENT
  Age: 11 Year
  Sex: Female
  Weight: 35.3806 kg

DRUGS (1)
  1. ROCEPHIN [Suspect]
     Indication: OSTEOMYELITIS
     Dosage: IV 2 GMS Q24
     Route: 042
     Dates: start: 20091217, end: 20100104

REACTIONS (2)
  - CHEST PAIN [None]
  - PRURITUS [None]
